FAERS Safety Report 25429260 (Version 1)
Quarter: 2025Q2

REPORT INFORMATION
  Report Type: Spontaneous
  Country: US (occurrence: US)
  Receive Date: 20250612
  Receipt Date: 20250612
  Transmission Date: 20250717
  Serious: No
  Sender: PIERRE FABRE MEDICAMENT
  Company Number: US-PFM-2025-00692

PATIENT
  Age: 0 Year
  Sex: Female
  Weight: 7.66 kg

DRUGS (2)
  1. HEMANGEOL [Suspect]
     Active Substance: PROPRANOLOL HYDROCHLORIDE
     Indication: Haemangioma
     Dosage: 2.3 ML, BID (2/DAY)
     Dates: start: 20241126
  2. Vitamin D AQ 400/ML Infant Liquid [Concomitant]
     Indication: Product used for unknown indication
     Route: 065

REACTIONS (4)
  - Rash [Unknown]
  - Eczema [Unknown]
  - Product administered to patient of inappropriate age [Unknown]
  - Off label use [Unknown]

NARRATIVE: CASE EVENT DATE: 20241126
